FAERS Safety Report 8461327-X (Version None)
Quarter: 2012Q2

REPORT INFORMATION
  Report Type: 
  Country: None (occurrence: None)
  Receive Date: 20120625
  Receipt Date: 20120613
  Transmission Date: 20120825
  Serious: Yes (Other)
  Sender: FDA-Public Use
  Company Number: CA-JNJFOC-20120607101

PATIENT
  Sex: Male
  Weight: 89 kg

DRUGS (4)
  1. PANTOPRAZOLE SODIUM [Concomitant]
     Route: 065
  2. METHOTREXATE [Concomitant]
     Dosage: 10 TABLETS PER WEEK
     Route: 065
  3. REMICADE [Suspect]
     Indication: CROHN'S DISEASE
     Route: 042
     Dates: start: 20070501
  4. MARIJUANA [Concomitant]
     Route: 065

REACTIONS (3)
  - PNEUMONIA [None]
  - WEIGHT DECREASED [None]
  - PLEURAL EFFUSION [None]
